FAERS Safety Report 5160890-4 (Version None)
Quarter: 2006Q4

REPORT INFORMATION
  Report Type: 
  Country: None (occurrence: None)
  Receive Date: 20061130
  Receipt Date: 20061030
  Transmission Date: 20070319
  Serious: Yes (Hospitalization, Other)
  Sender: FDA-Public Use
  Company Number: DE-BRISTOL-MYERS SQUIBB COMPANY-13560297

PATIENT
  Age: 18 Year
  Sex: Male
  Weight: 60 kg

DRUGS (9)
  1. ABILIFY [Suspect]
     Route: 048
  2. ACETAMINOPHEN [Suspect]
     Route: 048
  3. AMOXICILLIN [Suspect]
     Route: 048
  4. ALLVORAN [Suspect]
     Route: 048
  5. COTRIM DS [Suspect]
     Route: 048
  6. DOMPERIDONE [Suspect]
     Route: 048
  7. EUTHYROX [Suspect]
     Route: 048
  8. SEROQUEL [Suspect]
     Route: 048
  9. TRICYCLIC ANTIDEPRESSANTS [Suspect]
     Route: 048

REACTIONS (4)
  - MULTIPLE DRUG OVERDOSE [None]
  - SOMNOLENCE [None]
  - SUICIDE ATTEMPT [None]
  - SUPRAVENTRICULAR TACHYCARDIA [None]
